FAERS Safety Report 8974551 (Version 1)
Quarter: 2012Q4

REPORT INFORMATION
  Report Type: 
  Country: US (occurrence: US)
  Receive Date: 20121219
  Receipt Date: 20121219
  Transmission Date: 20130627
  Serious: No
  Sender: FDA-Public Use
  Company Number: US-AMGEN-USASP2012056536

PATIENT
  Age: 47 Year
  Sex: Female

DRUGS (4)
  1. PROLIA [Suspect]
     Indication: OSTEOPOROSIS POSTMENOPAUSAL
     Dosage: 60 mg, UNK
     Dates: start: 201012
  2. CALCIUM WITH VITAMIN D             /00944201/ [Concomitant]
     Dosage: UNK
  3. PLANT ALKALOIDS AND OTHER NATURAL PRODUCTS [Concomitant]
     Dosage: UNK
  4. TOPAMAX [Concomitant]
     Dosage: UNK

REACTIONS (7)
  - Neck pain [Recovered/Resolved]
  - Back pain [Recovering/Resolving]
  - Painful respiration [Unknown]
  - Musculoskeletal discomfort [Not Recovered/Not Resolved]
  - Pleurisy [Unknown]
  - Anxiety [Unknown]
  - Muscle strain [Unknown]
